FAERS Safety Report 22706998 (Version 3)
Quarter: 2023Q4

REPORT INFORMATION
  Report Type: Report from Study
  Country: FR (occurrence: FR)
  Receive Date: 20230714
  Receipt Date: 20231016
  Transmission Date: 20240110
  Serious: Yes (Hospitalization, Other)
  Sender: FDA-Public Use
  Company Number: FR-BAXTER-2023BAX026025

PATIENT
  Age: 56 Year
  Sex: Female
  Weight: 43 kg

DRUGS (25)
  1. CYCLOPHOSPHAMIDE [Suspect]
     Active Substance: CYCLOPHOSPHAMIDE
     Indication: Diffuse large B-cell lymphoma
     Dosage: 1027.5 MG, EVERY 3 WEEKS
     Route: 042
     Dates: start: 20230620
  2. DOXORUBICIN [Suspect]
     Active Substance: DOXORUBICIN
     Indication: Diffuse large B-cell lymphoma
     Dosage: 68.5 MG, EVERY 3 WEEKS
     Route: 042
     Dates: start: 20230620
  3. EPCORITAMAB [Suspect]
     Active Substance: EPCORITAMAB
     Indication: Diffuse large B-cell lymphoma
     Dosage: 0.16 MG PRIMING DOSE, TOTAL
     Route: 058
     Dates: start: 20230531, end: 20230531
  4. EPCORITAMAB [Suspect]
     Active Substance: EPCORITAMAB
     Dosage: 0.8 MG INTERMEDIATE DOSE, TOTAL
     Route: 058
     Dates: start: 20230606, end: 20230606
  5. EPCORITAMAB [Suspect]
     Active Substance: EPCORITAMAB
     Dosage: 48 MG FULL DOSE, EVERY 1 WEEKS
     Route: 058
     Dates: start: 20230613
  6. VINCRISTINE [Suspect]
     Active Substance: VINCRISTINE
     Indication: Diffuse large B-cell lymphoma
     Dosage: 1.92 MG, EVERY 3 WEEKS
     Route: 042
     Dates: start: 20230620
  7. RITUXIMAB [Suspect]
     Active Substance: RITUXIMAB
     Indication: Diffuse large B-cell lymphoma
     Dosage: 573.75 MG, EVERY 3 WEEKS
     Route: 042
     Dates: start: 20230620
  8. PREDNISONE [Suspect]
     Active Substance: PREDNISONE
     Indication: Diffuse large B-cell lymphoma
     Dosage: 100 MG DAY 1-5 CYCLE 1-6, EVERY 1 DAYS
     Route: 048
     Dates: start: 20230530, end: 20230601
  9. PREDNISONE [Suspect]
     Active Substance: PREDNISONE
     Dosage: 40 MG DOSE ADJUSTED REASON: ADMINISTRATION ERROR, EVERY 1 DAYS
     Route: 048
     Dates: start: 20230602, end: 20230603
  10. PREDNISONE [Suspect]
     Active Substance: PREDNISONE
     Dosage: 100 MG DAY 1-5 CYCLE 1-6, EVERY 1 DAYS (ONGOING)
     Route: 048
     Dates: start: 20230620
  11. VALACYCLOVIR HYDROCHLORIDE [Concomitant]
     Active Substance: VALACYCLOVIR HYDROCHLORIDE
     Indication: Infection prophylaxis
     Dosage: 500 MG, BID
     Route: 065
     Dates: start: 20230530
  12. ATOVAQUONE [Concomitant]
     Active Substance: ATOVAQUONE
     Indication: Infection prophylaxis
     Dosage: 5 ML, BID
     Route: 065
     Dates: start: 20230530
  13. SODIUM BICARBONATE [Concomitant]
     Active Substance: SODIUM BICARBONATE
     Indication: Prophylaxis
     Dosage: 6 U, 6 PER DAY
     Route: 065
     Dates: start: 20230530
  14. PANTOPRAZOLE [Concomitant]
     Active Substance: PANTOPRAZOLE
     Indication: Gastrooesophageal reflux prophylaxis
     Dosage: 40 MG, BID
     Route: 065
     Dates: start: 20230522
  15. FILGRASTIM [Concomitant]
     Active Substance: FILGRASTIM
     Indication: Prophylaxis
     Dosage: 30000 IU, EVERY 1 DAYS
     Route: 065
     Dates: start: 20230625, end: 20230628
  16. AMOXICILLIN [Concomitant]
     Active Substance: AMOXICILLIN
     Indication: Prophylaxis
     Dosage: 1 DOSAGE FORM (DOSE FORM: SACHET), QD
     Route: 065
     Dates: start: 20230530, end: 20230605
  17. ACETAMINOPHEN [Concomitant]
     Active Substance: ACETAMINOPHEN
     Indication: Premedication
     Dosage: 1000 MG, EVERY 3 WEEKS
     Route: 065
     Dates: start: 20230530
  18. CEFOTAXIME [Concomitant]
     Active Substance: CEFOTAXIME SODIUM
     Indication: Infection prophylaxis
     Dosage: 2 G, 2/DAYS
     Route: 065
     Dates: start: 20230629, end: 20230629
  19. POTASSIUM CHLORIDE [Concomitant]
     Active Substance: POTASSIUM CHLORIDE
     Indication: Hypokalaemia
     Dosage: 5 TABLET ONCE
     Route: 065
     Dates: start: 20230630, end: 20230630
  20. POTASSIUM CHLORIDE [Concomitant]
     Active Substance: POTASSIUM CHLORIDE
     Dosage: 4 DOSAGE FORM, EVERY 1 DAYS
     Route: 065
     Dates: start: 20230701, end: 20230702
  21. FUNGIZONE [Concomitant]
     Active Substance: AMPHOTERICIN B
     Indication: Prophylaxis
     Dosage: UNK, 3, 3/DAYS
     Route: 065
     Dates: start: 20230620
  22. PIPERACILLIN SODIUM [Concomitant]
     Active Substance: PIPERACILLIN SODIUM
     Indication: Infection prophylaxis
     Dosage: 4 G ONCE
     Route: 065
     Dates: start: 20230629, end: 20230629
  23. PIPERACILLIN SODIUM [Concomitant]
     Active Substance: PIPERACILLIN SODIUM
     Dosage: 8 G, 2/DAYS
     Route: 065
     Dates: start: 20230630, end: 20230630
  24. PIPERACILLIN SODIUM [Concomitant]
     Active Substance: PIPERACILLIN SODIUM
     Dosage: 4 G, 2/DAYS
     Route: 065
     Dates: start: 20230701
  25. POLARAMINE [Concomitant]
     Active Substance: DEXCHLORPHENIRAMINE MALEATE
     Indication: Premedication
     Dosage: 5 MG, EVERY 3 WEEKS
     Route: 065
     Dates: start: 20230530

REACTIONS (1)
  - Febrile neutropenia [Recovered/Resolved]

NARRATIVE: CASE EVENT DATE: 20230628
